FAERS Safety Report 8443202-X (Version None)
Quarter: 2012Q2

REPORT INFORMATION
  Report Type: 
  Country: None (occurrence: None)
  Receive Date: 20120617
  Receipt Date: 20120613
  Transmission Date: 20120825
  Serious: No
  Sender: FDA-Public Use
  Company Number: US-TEVA-343067USA

PATIENT
  Sex: Female
  Weight: 79.904 kg

DRUGS (4)
  1. MULTI-VITAMIN [Concomitant]
  2. OXYBUTYNIN [Concomitant]
  3. TOCOPHEROL CONCENTRATE CAP [Concomitant]
  4. AZILECT [Suspect]
     Indication: PARKINSON'S DISEASE
     Dosage: 1 MILLIGRAM;
     Route: 048
     Dates: start: 20120201

REACTIONS (3)
  - HYPOAESTHESIA [None]
  - LACRIMATION INCREASED [None]
  - PARAESTHESIA [None]
